FAERS Safety Report 24893652 (Version 2)
Quarter: 2025Q1

REPORT INFORMATION
  Report Type: Spontaneous
  Country: CA (occurrence: None)
  Receive Date: 20250128
  Receipt Date: 20250303
  Transmission Date: 20250409
  Serious: No
  Sender: ORION
  Company Number: CA-PFIZER INC-202500018776

PATIENT
  Age: 60 Year
  Sex: Male

DRUGS (1)
  1. METHOTREXATE [Suspect]
     Active Substance: METHOTREXATE
     Indication: Granulomatosis with polyangiitis

REACTIONS (1)
  - Product use in unapproved indication [Unknown]
